FAERS Safety Report 6230657-4 (Version None)
Quarter: 2009Q2

REPORT INFORMATION
  Report Type: 
  Country: None (occurrence: None)
  Receive Date: 20090616
  Receipt Date: 20090609
  Transmission Date: 20091009
  Serious: Yes (Hospitalization)
  Sender: FDA-Public Use
  Company Number: US-RB-016877-09

PATIENT
  Age: 40 Year
  Sex: Male

DRUGS (1)
  1. MUCINEX D MAXIMUM STRENGTH [Suspect]
     Route: 048
     Dates: start: 20090528

REACTIONS (2)
  - CONVULSION [None]
  - URINE AMPHETAMINE POSITIVE [None]
